FAERS Safety Report 10372743 (Version 1)
Quarter: 2014Q3

REPORT INFORMATION
  Report Type: Spontaneous
  Country: US (occurrence: US)
  Receive Date: 20140808
  Receipt Date: 20140808
  Transmission Date: 20150326
  Serious: Yes (Other)
  Sender: FDA-Public Use
  Company Number: US-BRISTOL-MYERS SQUIBB COMPANY-19407162

PATIENT
  Age: 61 Year
  Sex: Female
  Weight: 80.72 kg

DRUGS (1)
  1. SPRYCEL [Suspect]
     Active Substance: DASATINIB
     Indication: CHRONIC MYELOID LEUKAEMIA
     Dosage: AT NIGHT, INTERRUPTED ON 09-SEP-13

REACTIONS (2)
  - Pleural effusion [Unknown]
  - Pericardial effusion [Unknown]
